FAERS Safety Report 9605061 (Version 1)
Quarter: 2013Q4

REPORT INFORMATION
  Report Type: Spontaneous
  Country: FR (occurrence: FR)
  Receive Date: 20131008
  Receipt Date: 20131008
  Transmission Date: 20140711
  Serious: Yes (Hospitalization)
  Sender: FDA-Public Use
  Company Number: FR-ASTRAZENECA-2013SE73132

PATIENT
  Age: 900 Month
  Sex: Male

DRUGS (8)
  1. INEXIUM [Suspect]
     Route: 048
     Dates: end: 200909
  2. INEXIUM [Suspect]
     Route: 048
     Dates: start: 200909, end: 200910
  3. KARDEGIC [Concomitant]
  4. TAHOR [Concomitant]
  5. COVERSYL [Concomitant]
  6. ISOPTINE [Concomitant]
  7. NATISPRAY [Concomitant]
     Dosage: ON DEMAND
  8. SINTROM [Concomitant]

REACTIONS (11)
  - Convulsion [Recovered/Resolved]
  - Hypokalaemia [Recovered/Resolved]
  - Hypocalcaemia [Recovered/Resolved]
  - Urinary anastomotic leak [Recovered/Resolved]
  - Hypomagnesaemia [Recovered/Resolved]
  - Nausea [Recovered/Resolved]
  - Vomiting [Recovered/Resolved]
  - Loss of consciousness [Unknown]
  - Head injury [Unknown]
  - Dizziness [Recovered/Resolved]
  - Therapy cessation [Recovered/Resolved]
